FAERS Safety Report 15101338 (Version 4)
Quarter: 2018Q3

REPORT INFORMATION
  Report Type: Report from Study
  Country: DE (occurrence: DE)
  Receive Date: 20180703
  Receipt Date: 20180822
  Transmission Date: 20181010
  Serious: Yes (Congenital Anomaly, Other)
  Sender: FDA-Public Use
  Company Number: DE-AUROBINDO-AUR-APL-2018-033611

PATIENT
  Age: 1 Day
  Sex: Male
  Weight: .34 kg

DRUGS (8)
  1. FOLIC ACID W/IODINE [Concomitant]
     Indication: PROPHYLAXIS OF NEURAL TUBE DEFECT
     Dosage: UNK
     Route: 064
  2. RAMIPRIL. [Suspect]
     Active Substance: RAMIPRIL
     Indication: HYPERTENSION
     Dosage: 10 MG, PREGNANCY WEEK 0 TO 6 (+4)
     Route: 064
     Dates: start: 20130310, end: 20130425
  3. METFORMIN [Suspect]
     Active Substance: METFORMIN HYDROCHLORIDE
     Indication: TYPE 2 DIABETES MELLITUS
     Dosage: 1000 MILLIGRAM, ONCE A DAY,PREGNANCY WEEK 0 TO 6 (+4)
     Route: 064
     Dates: start: 20130310, end: 20130425
  4. LEVOTHYROXINE                      /00068002/ [Suspect]
     Active Substance: LEVOTHYROXINE
     Indication: AUTOIMMUNE THYROIDITIS
     Dosage: 75 MICROGRAM, ONCE A DAY,PREGNANCY WEEK 0 TO 35 (+3)
     Route: 064
  5. METHYLDOPA. [Suspect]
     Active Substance: METHYLDOPA
     Indication: HYPERTENSION
     Dosage: PREGNANCY WEEK 7(+4) TO 35 (+3)
     Route: 064
     Dates: start: 20130502, end: 20131113
  6. INSULIN [Concomitant]
     Active Substance: INSULIN NOS
     Indication: PRODUCT USED FOR UNKNOWN INDICATION
     Dosage: EXPOSURE DURATION: 0?35+3 WEEKS ()
     Route: 064
  7. METOPROLOL. [Suspect]
     Active Substance: METOPROLOL
     Indication: HYPERTENSION
     Dosage: PREGNANCY WEEK 7(+4) TO 35 (+3)
     Route: 064
     Dates: start: 20130502, end: 20131113
  8. SITAGLIPTIN [Suspect]
     Active Substance: SITAGLIPTIN
     Indication: TYPE 2 DIABETES MELLITUS
     Dosage: PREGNANCY WEEK 0 TO 6 (+4)
     Route: 064
     Dates: start: 20130310, end: 20130425

REACTIONS (4)
  - Foetal exposure during pregnancy [Recovered/Resolved]
  - Large for dates baby [Recovering/Resolving]
  - Atrial septal defect [Unknown]
  - Diabetic foetopathy [Recovered/Resolved]

NARRATIVE: CASE EVENT DATE: 20131113
